FAERS Safety Report 5764449-7 (Version None)
Quarter: 2008Q2

REPORT INFORMATION
  Report Type: 
  Country: None (occurrence: None)
  Receive Date: 20080610
  Receipt Date: 20080529
  Transmission Date: 20081010
  Serious: Yes (Hospitalization)
  Sender: FDA-Public Use
  Company Number: JP-PFIZER INC-2008046929

PATIENT
  Age: 60 Year
  Sex: Male

DRUGS (5)
  1. MIGLITOL TABLET [Suspect]
     Indication: DIABETES MELLITUS
     Dosage: DAILY DOSE:150MG
     Route: 048
     Dates: start: 20080401, end: 20080526
  2. LOPERAMIDE HCL [Suspect]
     Dosage: DAILY DOSE:2MG
     Route: 048
     Dates: start: 20080405, end: 20080525
  3. COLONEL [Suspect]
     Dosage: DAILY DOSE:1800MG
     Route: 048
     Dates: start: 20080408, end: 20080525
  4. ACECOL [Concomitant]
     Dosage: DAILY DOSE:2MG
     Route: 048
  5. AMIODARONE HCL [Concomitant]
     Dosage: DAILY DOSE:400MG
     Route: 048

REACTIONS (3)
  - ABDOMINAL PAIN [None]
  - PNEUMATOSIS INTESTINALIS [None]
  - VOMITING [None]
